FAERS Safety Report 6254190-9 (Version None)
Quarter: 2009Q3

REPORT INFORMATION
  Report Type: 
  Country: None (occurrence: None)
  Receive Date: 20090701
  Receipt Date: 20090701
  Transmission Date: 20100115
  Serious: Yes (Disabling)
  Sender: FDA-Public Use
  Company Number: None

PATIENT
  Age: 72 Year
  Sex: Male
  Weight: 72 kg

DRUGS (1)
  1. NAFCILLIN SODIUM [Suspect]
     Indication: STAPHYLOCOCCAL BACTERAEMIA
     Dosage: 2 G Q4H IV (16 DOSES)
     Route: 042
     Dates: start: 20090624, end: 20090627

REACTIONS (2)
  - MENTAL STATUS CHANGES [None]
  - RENAL TUBULAR NECROSIS [None]
